FAERS Safety Report 4982985-8 (Version None)
Quarter: 2006Q2

REPORT INFORMATION
  Report Type: 
  Country: None (occurrence: None)
  Receive Date: 20060426
  Receipt Date: 20060417
  Transmission Date: 20061013
  Serious: Yes (Other)
  Sender: FDA-Public Use
  Company Number: US-JNJFOC-20060101058

PATIENT
  Sex: Female

DRUGS (8)
  1. REMICADE [Suspect]
     Indication: RHEUMATOID ARTHRITIS
     Route: 042
  2. PLAQUINEL [Concomitant]
     Indication: RHEUMATOID ARTHRITIS
  3. VASOTEC [Concomitant]
  4. GLUCOPHAGE [Concomitant]
  5. ZOCOR [Concomitant]
  6. EFFEXOR [Concomitant]
  7. KLONOPIN [Concomitant]
     Dosage: QHS
  8. MOBIC [Concomitant]

REACTIONS (2)
  - BREAST CANCER [None]
  - BREAST CANCER FEMALE [None]
